FAERS Safety Report 6970350-3 (Version None)
Quarter: 2010Q3

REPORT INFORMATION
  Report Type: 
  Country: None (occurrence: None)
  Receive Date: 20100823
  Receipt Date: 20100629
  Transmission Date: 20110219
  Serious: No
  Sender: FDA-Public Use
  Company Number: 010723

PATIENT
  Sex: Female
  Weight: 46.2 kg

DRUGS (1)
  1. CIMZIA [Suspect]
     Indication: CROHN'S DISEASE
     Dosage: 400 MG 1X/MONTH SUBCUTANEOUS
     Route: 058
     Dates: start: 20090301

REACTIONS (3)
  - ANAL ABSCESS [None]
  - CYSTITIS [None]
  - PERIRECTAL ABSCESS [None]
